FAERS Safety Report 4786968-2 (Version None)
Quarter: 2005Q4

REPORT INFORMATION
  Report Type: 
  Country: None (occurrence: None)
  Receive Date: 20051004
  Receipt Date: 20050124
  Transmission Date: 20060501
  Serious: Yes (Other)
  Sender: FDA-Public Use
  Company Number: US-GLAXOSMITHKLINE-A0541986A

PATIENT
  Age: 38 Year
  Sex: Female
  Weight: 50 kg

DRUGS (1)
  1. PAXIL [Suspect]
     Indication: GENERALISED ANXIETY DISORDER
     Route: 048
     Dates: start: 20030301, end: 20050926

REACTIONS (8)
  - ABORTION SPONTANEOUS [None]
  - DRUG EXPOSURE DURING PREGNANCY [None]
  - FEELING HOT AND COLD [None]
  - FOETAL HEART RATE ABNORMAL [None]
  - IMPATIENCE [None]
  - MOOD ALTERED [None]
  - PAIN [None]
  - PREGNANCY [None]
